FAERS Safety Report 5209654-3 (Version None)
Quarter: 2006Q4

REPORT INFORMATION
  Report Type: 
  Country: None (occurrence: None)
  Receive Date: 20061122
  Receipt Date: 20051112
  Transmission Date: 20070319
  Serious: Yes (Other)
  Sender: FDA-Public Use
  Company Number: 2005082097

PATIENT
  Sex: Male

DRUGS (1)
  1. LIPITOR [Suspect]
     Indication: BLOOD CHOLESTEROL INCREASED
     Dosage: 10 MG (10 MG, 1 IN 1 D)
     Dates: start: 20010101, end: 20050131

REACTIONS (5)
  - ARTHRALGIA [None]
  - ATRIAL FIBRILLATION [None]
  - CHILLS [None]
  - MYALGIA [None]
  - PYREXIA [None]
